FAERS Safety Report 11806298 (Version 1)
Quarter: 2015Q4

REPORT INFORMATION
  Report Type: Spontaneous
  Country: US (occurrence: None)
  Receive Date: 20151204
  Receipt Date: 20151204
  Transmission Date: 20160305
  Serious: Yes (Other)
  Sender: FDA-Public Use
  Company Number: None

PATIENT
  Age: 20 Year
  Sex: Female
  Weight: 58.97 kg

DRUGS (1)
  1. NEXPLANON [Suspect]
     Active Substance: ETONOGESTREL
     Indication: CONTRACEPTION
     Dates: start: 20131113

REACTIONS (5)
  - Vaginal haemorrhage [None]
  - Headache [None]
  - Back pain [None]
  - Anaemia [None]
  - Device use error [None]

NARRATIVE: CASE EVENT DATE: 20131113
